FAERS Safety Report 21727978 (Version 1)
Quarter: 2022Q4

REPORT INFORMATION
  Report Type: Spontaneous
  Country: US (occurrence: US)
  Receive Date: 20221214
  Receipt Date: 20221214
  Transmission Date: 20230112
  Serious: No
  Sender: FDA-Public Use
  Company Number: US-Covis Pharma GmbH-2022COV22548

PATIENT
  Sex: Female

DRUGS (1)
  1. FERAHEME [Suspect]
     Active Substance: FERUMOXYTOL NON-STOICHIOMETRIC MAGNETITE
     Indication: Magnetic resonance imaging
     Dosage: 3MG/KG, MAX 510MG; 5 FOLD DILUTION IN SALINE INFUSED OVER 15 MINUTES

REACTIONS (1)
  - Off label use [Unknown]
